FAERS Safety Report 9657731 (Version 2)
Quarter: 2013Q4

REPORT INFORMATION
  Report Type: Spontaneous
  Country: US (occurrence: US)
  Receive Date: 20131030
  Receipt Date: 20131126
  Transmission Date: 20140711
  Serious: Yes (Hospitalization)
  Sender: FDA-Public Use
  Company Number: US-FRI-1000050603

PATIENT
  Age: 66 Year
  Sex: Female

DRUGS (1)
  1. TUDORZA PRESSAIR [Suspect]
     Route: 055
     Dates: start: 2013

REACTIONS (1)
  - Obliterative bronchiolitis [Not Recovered/Not Resolved]
